FAERS Safety Report 11926595 (Version 2)
Quarter: 2016Q1

REPORT INFORMATION
  Report Type: Spontaneous
  Country: ES (occurrence: ES)
  Receive Date: 20160119
  Receipt Date: 20160119
  Transmission Date: 20160526
  Serious: Yes (Hospitalization)
  Sender: FDA-Public Use
  Company Number: ES-ACTAVIS-2016-00668

PATIENT
  Age: 50 Year
  Sex: Female
  Weight: 69 kg

DRUGS (2)
  1. CARBOPLATIN (UNKNOWN) [Suspect]
     Active Substance: CARBOPLATIN
     Indication: BREAST CANCER
     Dosage: UNK UNK, 1/ THREE WEEKS [CICLOS DE 21 DIAS - 21-DAY CYCLES]
     Route: 042
     Dates: start: 20151007, end: 20151007
  2. DOCETAXEL ACTAVIS [Suspect]
     Active Substance: DOCETAXEL
     Indication: BREAST CANCER
     Dosage: UNK UNK, 1/ THREE WEEKS [CICLOS DE 21 DIAS - 21-DAY CYCLES]
     Route: 042
     Dates: start: 20151007, end: 20151007

REACTIONS (2)
  - Hot flush [Recovered/Resolved]
  - Choking sensation [Recovered/Resolved]

NARRATIVE: CASE EVENT DATE: 20151007
